FAERS Safety Report 8418754 (Version 3)
Quarter: 2012Q4

REPORT INFORMATION
  Report Type: 
  Country: US (occurrence: US)
  Receive Date: 20120221
  Receipt Date: 20121011
  Transmission Date: 20130627
  Serious: Yes (Hospitalization)
  Sender: FDA-Public Use
  Company Number: US-ELI_LILLY_AND_COMPANY-US201202003271

PATIENT
  Age: 73 Year
  Sex: Female

DRUGS (27)
  1. FORTEO [Suspect]
     Indication: OSTEOPOROSIS
     Dosage: 20 ug, qd
     Route: 058
     Dates: start: 20111004
  2. AMLODIPINE BESILATE [Concomitant]
  3. FUROSEMIDE [Concomitant]
  4. CYCLOPHOSPHAMIDE [Concomitant]
     Dosage: 50 mg, qd
     Dates: start: 20111004
  5. HYDROCODONE W/ACETAMINOPHEN [Concomitant]
  6. KLOR-CON [Concomitant]
  7. LEVOTHYROXINE [Concomitant]
  8. LIPITOR [Concomitant]
     Dosage: 40 mg, qd
     Dates: start: 20110912
  9. LISINOPRIL [Concomitant]
  10. NIASPAN [Concomitant]
     Dosage: 1 DF, qd
     Dates: start: 20110912
  11. PREDNISONE [Concomitant]
     Dosage: 20 mg, unknown
     Dates: start: 20110912
  12. ASPIRIN [Concomitant]
     Dosage: UNK, qd
  13. VITAMIN D NOS [Concomitant]
     Dosage: 200 IU, qd
     Dates: start: 20111004
  14. CALTRATE                           /00751519/ [Concomitant]
  15. TUMS                               /00751519/ [Concomitant]
     Dosage: 1 DF, qd
     Dates: start: 20110912
  16. SYNTHROID [Concomitant]
     Dosage: 150 ug, qd
     Dates: start: 20110912
  17. SKELAXIN [Concomitant]
     Dosage: 1 DF, tid
     Dates: start: 20110912
  18. RESTORIL [Concomitant]
     Dosage: 1 DF, qd
     Dates: start: 20110912
  19. PANTOPRAZOLE [Concomitant]
     Dosage: 40 mg, qd
     Dates: start: 20110912
  20. POTASSIUM CHLORIDE [Concomitant]
     Dosage: 20 mEq, qd
     Dates: start: 20110912
  21. NORVASC [Concomitant]
     Dosage: 10 mg, qd
     Dates: start: 20110912
  22. NEOMYCIN [Concomitant]
     Dosage: UNK, prn
     Dates: start: 20110912
  23. MIRALAX [Concomitant]
     Dosage: 17 g, qd
     Dates: start: 20110912
  24. LORTAB [Concomitant]
     Dosage: 1 DF, prn
     Dates: start: 20110912
  25. FERROUS SULFATE [Concomitant]
     Dosage: 1 DF, tid
     Dates: start: 20110912
  26. FENOFIBRATE [Concomitant]
     Dosage: 160 mg, qd
     Dates: start: 20110912
  27. COLACE [Concomitant]
     Dosage: 1 DF, bid
     Dates: start: 20110912

REACTIONS (3)
  - Spinal compression fracture [Recovering/Resolving]
  - Hospitalisation [Unknown]
  - Drug dose omission [Unknown]
